FAERS Safety Report 15669230 (Version 1)
Quarter: 2018Q4

REPORT INFORMATION
  Report Type: Spontaneous
  Country: DE (occurrence: DE)
  Receive Date: 20181129
  Receipt Date: 20181129
  Transmission Date: 20190205
  Serious: Yes (Hospitalization, Other)
  Sender: FDA-Public Use
  Company Number: DE-AUROBINDO-AUR-APL-2018-057450

PATIENT
  Age: 53 Year
  Sex: Male

DRUGS (1)
  1. AMOXICILLIN+CLAVULANIC ACID [Suspect]
     Active Substance: AMOXICILLIN\CLAVULANIC ACID
     Indication: CYSTITIS
     Dosage: UNK
     Route: 048
     Dates: start: 20140226, end: 20140228

REACTIONS (9)
  - Jaundice cholestatic [Recovered/Resolved]
  - Endotracheal intubation [Unknown]
  - Hepatitis [Recovered/Resolved]
  - Hepatic encephalopathy [Unknown]
  - Liver transplant [Unknown]
  - Hepatic function abnormal [Recovered/Resolved]
  - Toxicity to various agents [Unknown]
  - Drug hypersensitivity [Unknown]
  - Hepatic failure [Unknown]

NARRATIVE: CASE EVENT DATE: 20140226
